FAERS Safety Report 25912307 (Version 1)
Quarter: 2025Q4

REPORT INFORMATION
  Report Type: Spontaneous
  Country: EU (occurrence: EU)
  Receive Date: 20251013
  Receipt Date: 20251013
  Transmission Date: 20260118
  Serious: Yes (Other)
  Sender: BAXTER
  Company Number: EU-MLMSERVICE-20251001-PI664180-00128-1

PATIENT
  Age: 56 Year
  Sex: Male

DRUGS (17)
  1. CYCLOPHOSPHAMIDE [Suspect]
     Active Substance: CYCLOPHOSPHAMIDE
     Indication: Primary effusion lymphoma
     Dosage: CVP REGIMEN
     Route: 065
     Dates: start: 2024
  2. CYCLOPHOSPHAMIDE [Suspect]
     Active Substance: CYCLOPHOSPHAMIDE
     Dosage: COMPLETED 6 CYCLES OF R-CHOP REGIMEN
     Route: 065
  3. CYCLOPHOSPHAMIDE [Suspect]
     Active Substance: CYCLOPHOSPHAMIDE
     Dosage: DOSE REDUCTION DUE TO FEBRILE NEUTROPENIA AND NEUROTOXICITY
     Route: 065
  4. DOXORUBICIN [Suspect]
     Active Substance: DOXORUBICIN
     Indication: Primary effusion lymphoma
     Dosage: REDUCED DOSE DOXORUBICIN FOR PERSISTENT JAUNDICE
     Route: 065
  5. DOXORUBICIN [Suspect]
     Active Substance: DOXORUBICIN
     Dosage: FULL-DOSE DOXORUBICIN IN CYCLES II AND III
     Route: 065
  6. DOXORUBICIN [Suspect]
     Active Substance: DOXORUBICIN
     Dosage: COMPLETED 6 CYCLES OF R-CHOP
     Route: 065
  7. DOXORUBICIN [Suspect]
     Active Substance: DOXORUBICIN
     Dosage: DOSE REDUCTION DUE TO FEBRILE NEUTROPENIA AND NEUROTOXICITY
     Route: 065
  8. VINCRISTINE [Suspect]
     Active Substance: VINCRISTINE
     Indication: Primary effusion lymphoma
     Dosage: CVP REGIMEN
     Route: 065
     Dates: start: 2024
  9. VINCRISTINE [Suspect]
     Active Substance: VINCRISTINE
     Dosage: COMPLETED SIX CYCLES OF R-CHOP REGIMEN
     Route: 065
  10. VINCRISTINE [Suspect]
     Active Substance: VINCRISTINE
     Dosage: DOSE REDUCTION DUE TO FEBRILE NEUTROPENIA AND NEUROTOXICITY
     Route: 065
  11. RITUXIMAB [Suspect]
     Active Substance: RITUXIMAB
     Indication: Primary effusion lymphoma
     Dosage: MONOTHERAPY
     Route: 065
  12. RITUXIMAB [Suspect]
     Active Substance: RITUXIMAB
     Dosage: COMPLETED 6 CYCLES OF R-CHOP
     Route: 065
  13. RITUXIMAB [Suspect]
     Active Substance: RITUXIMAB
     Dosage: DOSE REDUCTION DUE TO FEBRILE NEUTROPENIA AND NEUROTOXICITY
     Route: 065
  14. PREDNISONE [Suspect]
     Active Substance: PREDNISONE
     Indication: Primary effusion lymphoma
     Dosage: CVP REGIMEN
     Route: 065
  15. PREDNISONE [Suspect]
     Active Substance: PREDNISONE
     Dosage: COMPLETED 6 CYCLES OF R-CHOP
     Route: 065
  16. PREDNISONE [Suspect]
     Active Substance: PREDNISONE
     Dosage: DOSE REDUCTION DUE TO FEBRILE NEUTROPENIA AND NEUROTOXICITY
     Route: 065
  17. EVEROLIMUS [Concomitant]
     Active Substance: EVEROLIMUS
     Indication: Immunosuppressant drug therapy
     Dosage: UNK
     Route: 065

REACTIONS (4)
  - Neurotoxicity [Unknown]
  - Nodular regenerative hyperplasia [Unknown]
  - Drug-induced liver injury [Unknown]
  - Febrile neutropenia [Unknown]

NARRATIVE: CASE EVENT DATE: 20250101
